FAERS Safety Report 8304283 (Version 7)
Quarter: 2013Q2

REPORT INFORMATION
  Report Type: Report from Study
  Country: DK (occurrence: DK)
  Receive Date: 20111221
  Receipt Date: 20130626
  Transmission Date: 20140414
  Serious: Yes (Life-Threatening, Hospitalization)
  Sender: FDA-Public Use
  Company Number: DK-SANOFI-AVENTIS-2011SA083021

PATIENT
  Age: 67 Year
  Sex: Male
  Weight: 90 kg

DRUGS (15)
  1. CABAZITAXEL [Suspect]
     Indication: PROSTATE CANCER
     Route: 042
     Dates: start: 20111130, end: 20111130
  2. PREDNISONE [Suspect]
     Indication: PROSTATE CANCER
     Route: 048
     Dates: start: 20111130, end: 20111216
  3. RANITIDINE [Concomitant]
     Indication: PROPHYLAXIS
     Route: 042
     Dates: start: 20111130, end: 20111130
  4. CLEMASTINE [Concomitant]
     Route: 042
     Dates: start: 20111130, end: 20111130
  5. DEXAMETHASONE [Concomitant]
     Indication: PROPHYLAXIS
     Route: 042
     Dates: start: 20111130, end: 20111130
  6. ENALAPRIL [Concomitant]
     Route: 048
  7. MOVICOL [Concomitant]
     Indication: PROPHYLAXIS
     Route: 048
  8. HERBAL PREPARATION [Concomitant]
     Route: 048
  9. IBUPROFEN [Concomitant]
     Route: 048
  10. GABAPENTIN [Concomitant]
     Route: 048
  11. LANSOPRAZOLE [Concomitant]
     Route: 048
  12. GLUCOSAMINE [Concomitant]
     Route: 048
  13. MORPHINE [Concomitant]
     Route: 048
  14. PARACETAMOL [Concomitant]
     Route: 048
  15. ZOMETA [Concomitant]
     Indication: PROPHYLAXIS
     Route: 042

REACTIONS (4)
  - Gastritis [Recovered/Resolved]
  - Disseminated intravascular coagulation [Recovered/Resolved]
  - Subarachnoid haemorrhage [Recovered/Resolved with Sequelae]
  - Urinary tract infection [Recovered/Resolved]
